FAERS Safety Report 5256697-X (Version None)
Quarter: 2007Q1

REPORT INFORMATION
  Report Type: 
  Country: None (occurrence: None)
  Receive Date: 20070306
  Receipt Date: 20070222
  Transmission Date: 20070707
  Serious: Yes (Death, Other)
  Sender: FDA-Public Use
  Company Number: JP-PFIZER INC-2007007165

PATIENT
  Age: 66 Year
  Sex: Male

DRUGS (8)
  1. LIPITOR [Suspect]
     Dosage: DAILY DOSE:20MG
     Route: 048
     Dates: start: 20061223, end: 20070121
  2. CALTAN [Concomitant]
     Route: 048
  3. TAKEPRON [Concomitant]
     Dosage: DAILY DOSE:15MG
     Route: 048
  4. WARFARIN POTASSIUM [Concomitant]
     Dosage: DAILY DOSE:12.5MG
  5. MUCOSTA [Concomitant]
     Dosage: DAILY DOSE:200MG
     Route: 048
  6. ADALAT [Concomitant]
     Dosage: DAILY DOSE:40MG
     Route: 048
  7. ASTOMIN [Concomitant]
     Route: 048
  8. MUCODYNE [Concomitant]
     Route: 048

REACTIONS (2)
  - DEATH [None]
  - WHITE BLOOD CELL COUNT DECREASED [None]
